FAERS Safety Report 9245057 (Version 5)
Quarter: 2022Q4

REPORT INFORMATION
  Report Type: Report from Study
  Country: TW (occurrence: TW)
  Receive Date: 20130422
  Receipt Date: 20221028
  Transmission Date: 20230113
  Serious: Yes (Hospitalization, Other)
  Sender: FDA-Public Use
  Company Number: TW-SHIRE-SPV1-2009-00758

PATIENT
  Age: 5 Year
  Sex: Male
  Weight: 32 kg

DRUGS (18)
  1. IDURSULFASE [Suspect]
     Active Substance: IDURSULFASE
     Indication: Mucopolysaccharidosis II
     Dosage: 13.1 MILLIGRAM, Q2WEEKS
     Route: 042
     Dates: start: 20090129
  2. IDURSULFASE [Suspect]
     Active Substance: IDURSULFASE
     Dosage: UNK, 1X/WEEK
     Route: 042
     Dates: start: 20091009
  3. ATENOLOL [Concomitant]
     Active Substance: ATENOLOL
     Indication: Left ventricular hypertrophy
     Dosage: UNK MILLIGRAM, QD
     Route: 048
     Dates: start: 20090114
  4. ATENOLOL [Concomitant]
     Active Substance: ATENOLOL
     Indication: Cardiovascular disorder
  5. ATENOLOL [Concomitant]
     Active Substance: ATENOLOL
     Indication: Premedication
  6. RENITEC [Concomitant]
     Indication: Left ventricular hypertrophy
     Dosage: 5 MILLIGRAM, BID
     Route: 048
     Dates: start: 20080903
  7. RENITEC [Concomitant]
     Indication: Cardiovascular disorder
  8. RENITEC [Concomitant]
     Indication: Premedication
  9. XYZAL [Concomitant]
     Active Substance: LEVOCETIRIZINE DIHYDROCHLORIDE
     Indication: Antiallergic therapy
     Dosage: UNK
     Route: 048
     Dates: start: 20100415
  10. AMBROXOL [Concomitant]
     Active Substance: AMBROXOL
     Indication: Productive cough
     Dosage: UNK
     Route: 048
     Dates: start: 20140205, end: 20140211
  11. METHYLEPHEDRINE [Concomitant]
     Active Substance: METHYLEPHEDRINE
     Indication: Respiratory disorder
     Dosage: UNK
     Route: 048
     Dates: start: 20140528, end: 20140605
  12. FENOTEROL [Concomitant]
     Active Substance: FENOTEROL
     Indication: Respiratory disorder
     Dosage: UNK
     Route: 048
     Dates: start: 20140528, end: 20140605
  13. GLYCYRRHIZA EXTRACT [Concomitant]
     Active Substance: GLYCYRRHIZA EXTRACT
     Indication: Cough
     Dosage: UNK
     Route: 048
     Dates: start: 20140528, end: 20140605
  14. LEVOCETIRIZINE [Concomitant]
     Active Substance: LEVOCETIRIZINE
     Indication: Antiallergic therapy
     Dosage: UNK
     Route: 048
     Dates: start: 20140528, end: 20140605
  15. LEVOCETIRIZINE [Concomitant]
     Active Substance: LEVOCETIRIZINE
     Dosage: UNK
     Route: 048
     Dates: start: 20140820, end: 20140828
  16. ACETYLCYSTEINE [Concomitant]
     Active Substance: ACETYLCYSTEINE
     Indication: Productive cough
     Dosage: UNK
     Route: 048
     Dates: start: 20140820, end: 20140828
  17. AMLODIPINE [Concomitant]
     Active Substance: AMLODIPINE BESYLATE
     Indication: Hypertension
     Dosage: UNK
     Route: 048
     Dates: start: 20140820
  18. CETIRIZINE [Concomitant]
     Active Substance: CETIRIZINE HYDROCHLORIDE
     Indication: Antiallergic therapy
     Dosage: UNK
     Route: 048
     Dates: start: 20141201, end: 20141229

REACTIONS (13)
  - Pneumonia [Recovered/Resolved]
  - Head injury [Recovered/Resolved]
  - Haematoma [Recovered/Resolved]
  - Concussion [Recovered/Resolved]
  - Brain oedema [Recovered/Resolved]
  - Intracranial pressure increased [Recovered/Resolved]
  - Cerebral ventricle dilatation [Recovered/Resolved]
  - Lethargy [Recovered/Resolved]
  - Decreased appetite [Recovered/Resolved]
  - Rhinorrhoea [Recovered/Resolved]
  - Fall [Recovered/Resolved]
  - Cough [Recovered/Resolved]
  - Vomiting [Recovered/Resolved]

NARRATIVE: CASE EVENT DATE: 20090301
